FAERS Safety Report 24926347 (Version 1)
Quarter: 2025Q1

REPORT INFORMATION
  Report Type: Spontaneous
  Country: GB (occurrence: GB)
  Receive Date: 20250205
  Receipt Date: 20250205
  Transmission Date: 20250409
  Serious: Yes (Hospitalization, Other)
  Sender: SAMSUNG BIOEPIS
  Company Number: None

PATIENT
  Sex: Male

DRUGS (1)
  1. INFLIXIMAB [Suspect]
     Active Substance: INFLIXIMAB
     Indication: Colitis ulcerative
     Dates: start: 20250122, end: 20250122

REACTIONS (2)
  - Loss of consciousness [Recovering/Resolving]
  - Hypotension [Recovered/Resolved]

NARRATIVE: CASE EVENT DATE: 20250122
